FAERS Safety Report 6640692-X (Version None)
Quarter: 2010Q1

REPORT INFORMATION
  Report Type: 
  Country: None (occurrence: None)
  Receive Date: 20100318
  Receipt Date: 20100305
  Transmission Date: 20100710
  Serious: Yes (Hospitalization, Other)
  Sender: FDA-Public Use
  Company Number: US-ELI_LILLY_AND_COMPANY-US201001002896

PATIENT
  Sex: Male
  Weight: 83.447 kg

DRUGS (6)
  1. BYETTA [Suspect]
     Dosage: UNK, UNKNOWN
     Dates: start: 20070401, end: 20070801
  2. SYNTHROID [Concomitant]
     Dosage: 25 UG, DAILY (1/D)
  3. HUMALOG                                 /GFR/ [Concomitant]
     Dosage: UNK, AS NEEDED
  4. LANTUS [Concomitant]
     Dosage: 35 U, DAILY (1/D)
  5. METFORMIN HYDROCHLORIDE [Concomitant]
     Dosage: UNK, UNKNOWN
  6. TYLENOL                                 /SCH/ [Concomitant]
     Dosage: UNK, UNKNOWN

REACTIONS (4)
  - OFF LABEL USE [None]
  - PANCREATITIS ACUTE [None]
  - PANCREATITIS CHRONIC [None]
  - RENAL FAILURE ACUTE [None]
